FAERS Safety Report 5243829-2 (Version None)
Quarter: 2007Q1

REPORT INFORMATION
  Report Type: 
  Country: None (occurrence: None)
  Receive Date: 20070215
  Receipt Date: 20070131
  Transmission Date: 20070707
  Serious: Yes (Other)
  Sender: FDA-Public Use
  Company Number: 2007000195

PATIENT
  Age: 54 Year
  Sex: Male

DRUGS (1)
  1. TARCEVA [Suspect]
     Indication: LUNG NEOPLASM MALIGNANT
     Dosage: 150 MG (QD); ORAL
     Route: 048
     Dates: start: 20061220, end: 20070119

REACTIONS (4)
  - ANXIETY [None]
  - BRONCHOSPASM [None]
  - DYSPNOEA [None]
  - PAROXYSMAL ARRHYTHMIA [None]
